FAERS Safety Report 11448337 (Version 1)
Quarter: 2015Q3

REPORT INFORMATION
  Report Type: Spontaneous
  Country: US (occurrence: US)
  Receive Date: 20150831
  Receipt Date: 20150831
  Transmission Date: 20151125
  Serious: No
  Sender: FDA-Public Use
  Company Number: US-ELI_LILLY_AND_COMPANY-US200907000114

PATIENT
  Age: 65 Year
  Sex: Male

DRUGS (3)
  1. CYMBALTA [Suspect]
     Active Substance: DULOXETINE HYDROCHLORIDE
     Indication: PAIN IN EXTREMITY
     Dosage: 120 MG, DAILY (1/D)
  2. CYMBALTA [Suspect]
     Active Substance: DULOXETINE HYDROCHLORIDE
     Dates: start: 200901, end: 200901
  3. LYRICA [Concomitant]
     Active Substance: PREGABALIN
     Indication: PAIN
     Dosage: 300 MG, DAILY (1/D)

REACTIONS (5)
  - Euphoric mood [Unknown]
  - Expired product administered [Recovered/Resolved]
  - Pain in extremity [Unknown]
  - Drug ineffective [Unknown]
  - Off label use [Recovered/Resolved]

NARRATIVE: CASE EVENT DATE: 200901
